FAERS Safety Report 8397640-4 (Version None)
Quarter: 2012Q2

REPORT INFORMATION
  Report Type: 
  Country: None (occurrence: None)
  Receive Date: 20120531
  Receipt Date: 20120524
  Transmission Date: 20120825
  Serious: No
  Sender: FDA-Public Use
  Company Number: US-PFIZER INC-2012126338

PATIENT
  Sex: Female

DRUGS (3)
  1. DOCUSATE [Concomitant]
     Indication: CONSTIPATION
     Dosage: UNK
  2. IBUPROFEN (ADVIL) [Suspect]
     Indication: PAIN
     Dosage: 2 LIQUIGELS, 4X/DAY
  3. IBUPROFEN (ADVIL) [Suspect]
     Indication: ACTIVITIES OF DAILY LIVING IMPAIRED

REACTIONS (2)
  - MOBILITY DECREASED [None]
  - PAIN [None]
